FAERS Safety Report 17155201 (Version 1)
Quarter: 2019Q4

REPORT INFORMATION
  Report Type: Spontaneous
  Country: PL (occurrence: PL)
  Receive Date: 20191214
  Receipt Date: 20191214
  Transmission Date: 20200122
  Serious: Yes (Hospitalization, Other)
  Sender: FDA-Public Use
  Company Number: PL-UNICHEM PHARMACEUTICALS (USA) INC-UCM201912-000828

PATIENT
  Age: 22 Year
  Sex: Male

DRUGS (10)
  1. CLOZAPINE. [Suspect]
     Active Substance: CLOZAPINE
     Indication: SCHIZOPHRENIA
  2. RISPERIDONE. [Concomitant]
     Active Substance: RISPERIDONE
     Dosage: GRADUALLY REDUCED FROM 6 MG PER DAY  TO 4 MG PER DAY ON 15 DAY OF TREATMENT
  3. RISPERIDONE. [Concomitant]
     Active Substance: RISPERIDONE
  4. RAMIPRIL. [Concomitant]
     Active Substance: RAMIPRIL
     Indication: MYOCARDITIS
  5. CLOZAPINE. [Suspect]
     Active Substance: CLOZAPINE
     Dosage: REDUCED TO 50 MG PER DAY
  6. DIVALPROEX SODIUM. [Suspect]
     Active Substance: DIVALPROEX SODIUM
  7. CLOZAPINE. [Suspect]
     Active Substance: CLOZAPINE
     Dosage: GRADUALLY INCREASED TO 100 MG PER DAY
  8. RISPERIDONE. [Concomitant]
     Active Substance: RISPERIDONE
     Indication: SCHIZOPHRENIA
     Dosage: 6 MG PER DAY FOR 12 WEEKS
  9. CLOPENTHIXOL [Concomitant]
     Active Substance: CLOPENTHIXOL
     Indication: SCHIZOPHRENIA
  10. DIVALPROEX SODIUM. [Suspect]
     Active Substance: DIVALPROEX SODIUM
     Indication: SCHIZOPHRENIA
     Dosage: 1200 MG PER DAY FOR 3 WEEKS

REACTIONS (2)
  - Drug interaction [Recovered/Resolved]
  - Myocarditis [Recovered/Resolved]
